FAERS Safety Report 22291932 (Version 2)
Quarter: 2023Q2

REPORT INFORMATION
  Report Type: Report from Study
  Country: GB (occurrence: GB)
  Receive Date: 20230507
  Receipt Date: 20230606
  Transmission Date: 20230721
  Serious: Yes (Death, Other)
  Sender: FDA-Public Use
  Company Number: GB-CELLTRION INC.-2023GB009413

PATIENT

DRUGS (39)
  1. TRASTUZUMAB [Suspect]
     Active Substance: TRASTUZUMAB
     Indication: Breast cancer metastatic
     Dosage: 651 MG ONCE IN 3 WEEKS (CUMULATIVE DOSE TO FIRST REACTION: 2046.0 MG)
     Route: 042
     Dates: start: 20170428, end: 20170428
  2. TRASTUZUMAB [Suspect]
     Active Substance: TRASTUZUMAB
     Dosage: 651 MG ONCE IN 3 WEEKS (CUMULATIVE DOSE TO FIRST REACTION: 2046.0 MG)
     Route: 042
     Dates: start: 20170428, end: 20170428
  3. TRASTUZUMAB [Suspect]
     Active Substance: TRASTUZUMAB
     Dosage: 441 MG, ONCE IN 3 WEEKS
     Route: 042
     Dates: start: 20170522
  4. TRASTUZUMAB [Suspect]
     Active Substance: TRASTUZUMAB
     Dosage: 441 MG, ONCE IN 3 WEEKS
     Route: 042
     Dates: start: 20170522
  5. DOCETAXEL [Suspect]
     Active Substance: DOCETAXEL
     Indication: Breast cancer metastatic
     Dosage: 132 MG, NUMBER OF CYCLE: 6, ONCE IN 3 WEEKS
     Route: 042
     Dates: start: 20170501
  6. PERTUZUMAB [Suspect]
     Active Substance: PERTUZUMAB
     Indication: Breast cancer metastatic
     Dosage: 840 MG, ONCE IN 3 WEEKS
     Route: 042
     Dates: start: 20170501, end: 201705
  7. TAMOXIFEN [Suspect]
     Active Substance: TAMOXIFEN
     Indication: Breast cancer metastatic
     Dosage: 20 MG, ONCE IN 1 DAY
     Route: 048
     Dates: start: 20161115, end: 201704
  8. ACYCLOVIR [Concomitant]
     Active Substance: ACYCLOVIR
     Dosage: 500 MG, EVERY 1 DAY (CUMULATIVE DOSE TO FIRST REACTION: 321500.0 MG)
     Route: 042
     Dates: start: 20190407, end: 20190409
  9. ACYCLOVIR [Concomitant]
     Active Substance: ACYCLOVIR
     Dosage: 800 MG, EVERY 1 DAY (CUMULATIVE DOSE TO FIRST REACTION: 517600.0 MG)
     Route: 048
     Dates: start: 20190411, end: 20190416
  10. AMOXICILLIN [Concomitant]
     Active Substance: AMOXICILLIN
     Dosage: 1500 MG, EVERY 1 DAY  (CUMULATIVE DOSE TO FIRST REACTION: 825062.5 MG)
     Route: 048
     Dates: start: 20190104, end: 20190118
  11. ANASTROZOLE [Concomitant]
     Active Substance: ANASTROZOLE
     Dosage: UNK
     Dates: start: 2014, end: 201611
  12. CIPROFLOXACIN [Concomitant]
     Active Substance: CIPROFLOXACIN
     Dosage: 1000 MG, EVERY 1 DAY (CUMULATIVE DOSE TO FIRST REACTION: 65000.0 MG)
     Route: 048
     Dates: start: 20170429, end: 20170505
  13. CIPROFLOXACIN [Concomitant]
     Active Substance: CIPROFLOXACIN
     Dosage: 750 MG, EVERY 1 DAY (CUMULATIVE DOSE TO FIRST REACTION: 482250.0 MG)
     Route: 042
     Dates: start: 20190407, end: 20190408
  14. COCODAMOL [Concomitant]
     Active Substance: ACETAMINOPHEN\CODEINE PHOSPHATE
     Dosage: 30 MG
     Route: 048
     Dates: start: 20161115
  15. DALTEPARIN [Concomitant]
     Active Substance: DALTEPARIN
     Dosage: 1 UNK, EVERY 1 DAY, 5000 UNIT
     Route: 058
     Dates: start: 20170704, end: 20171201
  16. DAPAGLIFLOZIN [Concomitant]
     Active Substance: DAPAGLIFLOZIN
     Dosage: 10 MG, EVERY 1 DAY
     Route: 048
  17. DENOSUMAB [Concomitant]
     Active Substance: DENOSUMAB
     Dosage: 120 MG
     Route: 058
     Dates: start: 20170107
  18. CLOBETASOL [Concomitant]
     Active Substance: CLOBETASOL
     Dosage: 1 UNK, EVERY 1 DAY
     Route: 067
     Dates: start: 20180716
  19. DOXYCYCLINE [Concomitant]
     Active Substance: DOXYCYCLINE
     Dosage: 100 MG, EVERY 1 DAY (CUMULATIVE DOSE TO FIRST REACTION: 6400.0 MG)
     Route: 048
     Dates: start: 20170430, end: 20170505
  20. EXEMESTANE [Concomitant]
     Active Substance: EXEMESTANE
     Dosage: 25 MG
     Route: 048
     Dates: start: 20200104, end: 20200109
  21. GENTAMICIN [Concomitant]
     Active Substance: GENTAMICIN
     Dosage: 270 MG, EVERY 1 DAY (CUMULATIVE DOSE TO FIRST REACTION: 244361.25 MG)
     Route: 042
     Dates: start: 20191225, end: 20191230
  22. GLICLAZIDE [Concomitant]
     Active Substance: GLICLAZIDE
     Dosage: 90 MG, EVERY 1 DAY
     Route: 048
     Dates: start: 20171001
  23. LOPERAMIDE [Concomitant]
     Active Substance: LOPERAMIDE
     Indication: Diarrhoea
     Dosage: 2 MG
     Route: 048
     Dates: start: 201706, end: 201706
  24. LOSARTAN [Concomitant]
     Active Substance: LOSARTAN
     Dosage: 50 MG, EVERY 1 DAY (CUMULATIVE DOSE TO FIRST REACTION: 30747.916 MG)
     Route: 048
     Dates: start: 20151027, end: 20170217
  25. METRONIDAZOLE [Concomitant]
     Active Substance: METRONIDAZOLE
     Dosage: 1200 MG, EVERY 1 DAY (CUMULATIVE DOSE TO FIRST REACTION: 78000.0 MG)
     Route: 048
     Dates: start: 20170429, end: 20170429
  26. MIDAZOLAM [Concomitant]
     Active Substance: MIDAZOLAM
     Dosage: 2.5 MG
     Route: 058
     Dates: start: 20200108, end: 20200109
  27. MORPHINE SULFATE [Concomitant]
     Active Substance: MORPHINE SULFATE
     Dosage: 5 MG
     Route: 048
     Dates: start: 20200106, end: 20200108
  28. MOVICOL [Concomitant]
     Active Substance: POLYETHYLENE GLYCOL 3350\POTASSIUM CHLORIDE\SODIUM BICARBONATE\SODIUM CHLORIDE
     Dosage: 2 UNK, EVERY 1 DAY
     Route: 048
     Dates: start: 20170430, end: 20170514
  29. NAPROXEN [Concomitant]
     Active Substance: NAPROXEN
     Dosage: 1000 MG, EVERY 1 DAY (CUMULATIVE DOSE TO FIRST REACTION: 229958.33 MG)
     Route: 048
     Dates: start: 20161115, end: 20170216
  30. NOVORAPID [Concomitant]
     Active Substance: INSULIN ASPART
     Dosage: 2 UNK, EVERY 1 DAY, 4 UNIT
     Route: 058
     Dates: start: 20200105, end: 20200108
  31. OMEPRAZOLE [Concomitant]
     Active Substance: OMEPRAZOLE
     Dosage: 20 MG, EVERY 1 DAY (CUMULATIVE DOSE TO FIRST REACTION: 5680.0 MG)
     Route: 048
     Dates: start: 20180413
  32. OMEPRAZOLE [Concomitant]
     Active Substance: OMEPRAZOLE
     Dosage: 20 MG, EVERY 1 DAY
     Route: 048
     Dates: start: 201712
  33. SAXAGLIPTIN [Concomitant]
     Active Substance: SAXAGLIPTIN
     Dosage: 5 MG, EVERY 1 DAY
     Route: 048
     Dates: start: 2014
  34. TAMOXIFEN [Concomitant]
     Active Substance: TAMOXIFEN
     Dosage: UNK
     Route: 065
     Dates: start: 201611, end: 201704
  35. TEICOPLANIN [Concomitant]
     Active Substance: TEICOPLANIN
     Dosage: 400 MG, EVERY 1 DAY (CUMULATIVE DOSE TO FIRST REACTION: 26000.0 MG)
     Route: 042
     Dates: start: 20170429, end: 20170429
  36. TEICOPLANIN [Concomitant]
     Active Substance: TEICOPLANIN
     Dosage: 800 MG, QD (CUMULATIVE DOSE TO FIRST REACTION: 723233.3 MG)
     Route: 042
     Dates: start: 20191224, end: 20191225
  37. TRIMETHOPRIM [Concomitant]
     Active Substance: TRIMETHOPRIM
     Dosage: 400 MG, EVERY 1 DAY (CUMULATIVE DOSE TO FIRST REACTION: 367216.66 MG)
     Route: 048
     Dates: start: 20200107, end: 20200109
  38. TRIMETHOPRIM [Concomitant]
     Active Substance: TRIMETHOPRIM
     Dosage: 100 MG, EVERY 1 DAY (CUMULATIVE DOSE TO FIRST REACTION: 91804.164 MG)
     Route: 048
     Dates: start: 20200107, end: 20200109
  39. TRIMETHOPRIM [Concomitant]
     Active Substance: TRIMETHOPRIM
     Dosage: 400 MG, EVERY 1 DAY (CUMULATIVE DOSE TO FIRST REACTION: 367216.66 MG)
     Route: 048
     Dates: start: 20200107, end: 20200109

REACTIONS (4)
  - Breast cancer metastatic [Fatal]
  - Deep vein thrombosis [Recovered/Resolved]
  - Skull fracture [Recovered/Resolved]
  - Herpes zoster [Recovered/Resolved]

NARRATIVE: CASE EVENT DATE: 20170703
